FAERS Safety Report 16015010 (Version 1)
Quarter: 2019Q1

REPORT INFORMATION
  Report Type: Spontaneous
  Country: AU (occurrence: AU)
  Receive Date: 20190227
  Receipt Date: 20190227
  Transmission Date: 20190418
  Serious: Yes (Other)
  Sender: FDA-Public Use
  Company Number: AU-TITAN PHARMACEUTICALS-2019TAN00005

PATIENT
  Age: 31 Year
  Sex: Male

DRUGS (1)
  1. BUPRENORPHINE. [Suspect]
     Active Substance: BUPRENORPHINE
     Route: 042

REACTIONS (4)
  - Incorrect route of product administration [Unknown]
  - Tubulointerstitial nephritis [Unknown]
  - Intentional product misuse [None]
  - Hepatic failure [Unknown]
